FAERS Safety Report 7939625-5 (Version None)
Quarter: 2011Q4

REPORT INFORMATION
  Report Type: 
  Country: None (occurrence: None)
  Receive Date: 20111125
  Receipt Date: 20111115
  Transmission Date: 20120403
  Serious: Yes (Hospitalization)
  Sender: FDA-Public Use
  Company Number: PHHY2011JP097137

PATIENT
  Sex: Male

DRUGS (5)
  1. CARBAMAZEPINE [Suspect]
     Indication: PAIN
     Dosage: 500 MG, DAILY
  2. CARBAMAZEPINE [Suspect]
     Dosage: 300 MG, DAILY
  3. GOREISAN [Concomitant]
  4. GABAPENTIN [Concomitant]
     Dosage: 1200 MG, DAILY
  5. BACLOFEN [Suspect]
     Indication: PAIN
     Dosage: 45 MG, DAILY

REACTIONS (5)
  - DIZZINESS [None]
  - MUSCULAR WEAKNESS [None]
  - VOMITING [None]
  - DECREASED APPETITE [None]
  - DRUG INEFFECTIVE [None]
